FAERS Safety Report 7033291-1 (Version None)
Quarter: 2010Q4

REPORT INFORMATION
  Report Type: 
  Country: None (occurrence: None)
  Receive Date: 20101007
  Receipt Date: 20101004
  Transmission Date: 20110411
  Serious: Yes (Life-Threatening, Hospitalization, Disabling, Other)
  Sender: FDA-Public Use
  Company Number: A0885313A

PATIENT
  Sex: Male

DRUGS (2)
  1. AVANDIA [Suspect]
     Dosage: 4MG PER DAY
     Route: 048
     Dates: start: 20010101, end: 20100929
  2. GLIMEPIRIDE [Concomitant]
     Dosage: 1TAB VARIABLE DOSE
     Route: 048

REACTIONS (7)
  - CEREBROVASCULAR ACCIDENT [None]
  - GAIT DISTURBANCE [None]
  - HYPERAEMIA [None]
  - HYPERSENSITIVITY [None]
  - INFARCTION [None]
  - PRURITUS [None]
  - SPEECH DISORDER [None]
